FAERS Safety Report 7909836-3 (Version None)
Quarter: 2011Q4

REPORT INFORMATION
  Report Type: 
  Country: None (occurrence: None)
  Receive Date: 20111111
  Receipt Date: 20111109
  Transmission Date: 20120403
  Serious: Yes (Hospitalization, Other)
  Sender: FDA-Public Use
  Company Number: US-MERCK-1108USA02953

PATIENT
  Age: 64 Year
  Sex: Female

DRUGS (5)
  1. FOSAMAX [Suspect]
     Indication: OSTEOPOROSIS
     Route: 048
     Dates: start: 19950101, end: 20080201
  2. ALENDRONATE SODIUM [Suspect]
     Indication: OSTEOPOROSIS
     Route: 065
     Dates: start: 20090101, end: 20090801
  3. VITAMINS (UNSPECIFIED) [Concomitant]
     Route: 065
     Dates: start: 19940101
  4. CALCIUM (UNSPECIFIED) [Concomitant]
     Route: 065
     Dates: start: 19940101
  5. VITAMIN D (UNSPECIFIED) [Concomitant]
     Route: 065
     Dates: start: 19940101

REACTIONS (12)
  - GASTROOESOPHAGEAL REFLUX DISEASE [None]
  - WRIST FRACTURE [None]
  - HYPERTENSION [None]
  - BLOOD CHOLESTEROL INCREASED [None]
  - PEPTIC ULCER [None]
  - FEMUR FRACTURE [None]
  - ANXIETY [None]
  - PAIN IN EXTREMITY [None]
  - HERPES ZOSTER [None]
  - DENTAL CARE [None]
  - SURGERY [None]
  - STRESS [None]
